FAERS Safety Report 11341728 (Version 1)
Quarter: 2015Q3

REPORT INFORMATION
  Report Type: Spontaneous
  Country: US (occurrence: None)
  Receive Date: 20150803
  Receipt Date: 20150803
  Transmission Date: 20151125
  Serious: Yes (Disabling)
  Sender: FDA-Public Use
  Company Number: None

PATIENT
  Age: 59 Year
  Sex: Male
  Weight: 108.86 kg

DRUGS (7)
  1. DIOVAN [Concomitant]
     Active Substance: VALSARTAN
  2. GLIMEPIRIDE. [Concomitant]
     Active Substance: GLIMEPIRIDE
  3. CARVEDILOL. [Concomitant]
     Active Substance: CARVEDILOL
  4. CRESTOR [Suspect]
     Active Substance: ROSUVASTATIN CALCIUM
     Indication: HYPERLIPIDAEMIA
     Dosage: 1 PER DAY  ONCE DAILY TAKEN BY MOUTH
     Route: 048
     Dates: start: 20070801
  5. PRISTIQ EXTENDED RELEASE [Concomitant]
     Active Substance: DESVENLAFAXINE SUCCINATE
  6. MIRTAZIPINE [Concomitant]
     Active Substance: MIRTAZAPINE
  7. METFORMIN [Concomitant]
     Active Substance: METFORMIN HYDROCHLORIDE

REACTIONS (5)
  - Cognitive disorder [None]
  - Type 2 diabetes mellitus [None]
  - Myalgia [None]
  - Asthenia [None]
  - Amnesia [None]

NARRATIVE: CASE EVENT DATE: 20100201
